FAERS Safety Report 7782292-4 (Version None)
Quarter: 2011Q3

REPORT INFORMATION
  Report Type: 
  Country: None (occurrence: None)
  Receive Date: 20110927
  Receipt Date: 20110914
  Transmission Date: 20111222
  Serious: Yes (Other)
  Sender: FDA-Public Use
  Company Number: CA-ELI_LILLY_AND_COMPANY-CA201109003672

PATIENT
  Sex: Female

DRUGS (7)
  1. VALPROATE SODIUM [Concomitant]
  2. ZYPREXA [Suspect]
     Dosage: 7.5 MG, QD
  3. ZYPREXA ZYDIS [Suspect]
     Indication: SCHIZOAFFECTIVE DISORDER
     Dosage: 5 MG, EACH EVENING
  4. ZYPREXA [Suspect]
     Indication: SCHIZOAFFECTIVE DISORDER
     Dosage: 5 MG, EACH EVENING
  5. ZYPREXA [Suspect]
     Dosage: 2.5 MG, EACH EVENING
  6. ZYPREXA ZYDIS [Suspect]
     Dosage: 5 MG, BID
     Dates: start: 20050201
  7. ZYPREXA [Suspect]
     Dosage: 10 MG, EACH EVENING

REACTIONS (13)
  - IMMUNODEFICIENCY [None]
  - TYPE 2 DIABETES MELLITUS [None]
  - HYPERGLYCAEMIA [None]
  - KIDNEY INFECTION [None]
  - CARDIAC MURMUR [None]
  - WEIGHT DECREASED [None]
  - HYPOGLYCAEMIA [None]
  - RENAL FAILURE [None]
  - CONVULSION [None]
  - HAEMATOCHEZIA [None]
  - VAGINITIS BACTERIAL [None]
  - FUNGAL INFECTION [None]
  - DERMATITIS CONTACT [None]
